FAERS Safety Report 20975982 (Version 2)
Quarter: 2023Q4

REPORT INFORMATION
  Report Type: Spontaneous
  Country: US (occurrence: US)
  Receive Date: 20220617
  Receipt Date: 20231103
  Transmission Date: 20240109
  Serious: No
  Sender: FDA-Public Use
  Company Number: US-PFIZER INC-202200846268

PATIENT
  Age: 67 Year
  Sex: Female

DRUGS (3)
  1. IBRANCE [Suspect]
     Active Substance: PALBOCICLIB
     Dosage: 75 MG, CYCLIC (DAILY FOR 21 DAYS ON 7 DAYS OFF)
     Dates: start: 20220221
  2. IBRANCE [Suspect]
     Active Substance: PALBOCICLIB
     Dosage: NORMALLY TAKE TWO WEEKS OFF
  3. IBRANCE [Suspect]
     Active Substance: PALBOCICLIB
     Dosage: 75 MG, CYCLIC 1 CAPSULE DAILY FOR 21 DAYS ON WITH 14 DAYS OFF EVERY 35 DAYS

REACTIONS (2)
  - Off label use [Unknown]
  - White blood cell count decreased [Recovering/Resolving]

NARRATIVE: CASE EVENT DATE: 20220101
